FAERS Safety Report 15864370 (Version 1)
Quarter: 2019Q1

REPORT INFORMATION
  Report Type: Spontaneous
  Country: HU (occurrence: HU)
  Receive Date: 20190124
  Receipt Date: 20190124
  Transmission Date: 20190417
  Serious: Yes (Hospitalization)
  Sender: FDA-Public Use
  Company Number: HU-B.I. PHARMACEUTICALS,INC./RIDGEFIELD-2019-BI-002521

PATIENT
  Age: 80 Year
  Sex: Female

DRUGS (2)
  1. PRADAXA [Suspect]
     Active Substance: DABIGATRAN ETEXILATE MESYLATE
     Indication: ATRIAL FIBRILLATION
     Route: 048
  2. PRADAXA [Suspect]
     Active Substance: DABIGATRAN ETEXILATE MESYLATE
     Route: 048

REACTIONS (2)
  - Aphasia [Recovered/Resolved]
  - Ischaemic stroke [Recovered/Resolved]

NARRATIVE: CASE EVENT DATE: 20190111
